FAERS Safety Report 6504027-5 (Version None)
Quarter: 2009Q4

REPORT INFORMATION
  Report Type: 
  Country: None (occurrence: None)
  Receive Date: 20091216
  Receipt Date: 20091216
  Transmission Date: 20100525
  Serious: No
  Sender: FDA-Public Use
  Company Number: None

PATIENT
  Age: 44 Year
  Sex: Female
  Weight: 50 kg

DRUGS (4)
  1. LISINOPRIL [Suspect]
     Indication: HYPERTENSION
     Dosage: ORAL
     Route: 048
     Dates: start: 20080520, end: 20080613
  2. IRON (FERROUS SULPHATE) [Concomitant]
  3. METOCLOPRAMIDE [Concomitant]
  4. OMEPRAZOLE [Concomitant]

REACTIONS (3)
  - OROPHARYNGEAL PAIN [None]
  - STOMATITIS [None]
  - SWOLLEN TONGUE [None]
